FAERS Safety Report 9066845 (Version 2)
Quarter: 2013Q1

REPORT INFORMATION
  Report Type: Spontaneous
  Country: DE (occurrence: DE)
  Receive Date: 20130214
  Receipt Date: 20130315
  Transmission Date: 20140127
  Serious: Yes (Other)
  Sender: FDA-Public Use
  Company Number: DE-GLAXOSMITHKLINE-D0078715A

PATIENT
  Sex: Female
  Weight: 55 kg

DRUGS (3)
  1. LAMICTAL [Suspect]
     Indication: PETIT MAL EPILEPSY
     Dosage: 200MG TWICE PER DAY
     Route: 048
  2. ZONEGRAN [Concomitant]
     Indication: PETIT MAL EPILEPSY
     Dosage: 250MG PER DAY
     Route: 048
  3. VIMPAT [Concomitant]
     Indication: PETIT MAL EPILEPSY
     Route: 065
     Dates: start: 2012

REACTIONS (7)
  - Depressed level of consciousness [Recovered/Resolved]
  - Gait disturbance [Recovered/Resolved]
  - Speech disorder [Recovered/Resolved]
  - Crying [Recovered/Resolved]
  - Dizziness [Recovered/Resolved]
  - Balance disorder [Recovered/Resolved]
  - Memory impairment [Recovered/Resolved]
